FAERS Safety Report 6109499-6 (Version None)
Quarter: 2009Q1

REPORT INFORMATION
  Report Type: 
  Country: None (occurrence: None)
  Receive Date: 20090306
  Receipt Date: 20090219
  Transmission Date: 20090719
  Serious: Yes (Other)
  Sender: FDA-Public Use
  Company Number: CIP07000588

PATIENT
  Age: 53 Year
  Sex: Female

DRUGS (6)
  1. ACTONEL [Suspect]
     Indication: OSTEOPOROSIS
     Dosage: ORAL
     Route: 048
     Dates: start: 20040901, end: 20050201
  2. ZOLOFT [Concomitant]
  3. LEVOTHROID [Concomitant]
  4. KELFEX /00145501/ (CEFELEXIN) TABLET [Concomitant]
  5. WELLBURTIN /00700501/ (BUPROPION) [Concomitant]
  6. NEUROTIN (GABAPENTIN) CAPSULE [Concomitant]

REACTIONS (56)
  - ANXIETY [None]
  - ARTHRALGIA [None]
  - ARTHROPATHY [None]
  - ASTHENIA [None]
  - BONE PAIN [None]
  - BURNING SENSATION [None]
  - CANDIDIASIS [None]
  - CONTUSION [None]
  - DEPRESSION [None]
  - EMOTIONAL DISTRESS [None]
  - ERYTHEMA [None]
  - EXCORIATION [None]
  - FALL [None]
  - FRACTURE MALUNION [None]
  - GAIT DISTURBANCE [None]
  - GROIN PAIN [None]
  - HAEMORRHAGE [None]
  - HEAD INJURY [None]
  - HEADACHE [None]
  - HYPERAEMIA [None]
  - HYPOAESTHESIA [None]
  - IMPAIRED HEALING [None]
  - INCISION SITE COMPLICATION [None]
  - INCISION SITE ERYTHEMA [None]
  - INCISION SITE HAEMORRHAGE [None]
  - INCISION SITE PAIN [None]
  - INSOMNIA [None]
  - JOINT CREPITATION [None]
  - JOINT HYPEREXTENSION [None]
  - JOINT RANGE OF MOTION DECREASED [None]
  - JOINT SPRAIN [None]
  - JOINT STIFFNESS [None]
  - JOINT SWELLING [None]
  - LIMB DISCOMFORT [None]
  - LIMB INJURY [None]
  - MUSCLE SPASMS [None]
  - MUSCULOSKELETAL DISORDER [None]
  - NODULE ON EXTREMITY [None]
  - OEDEMA [None]
  - OEDEMA PERIPHERAL [None]
  - OSTEONECROSIS [None]
  - PAIN IN EXTREMITY [None]
  - PARAESTHESIA [None]
  - POST PROCEDURAL DRAINAGE [None]
  - PURULENT DISCHARGE [None]
  - RADIUS FRACTURE [None]
  - SKIN DISCOLOURATION [None]
  - SKIN LACERATION [None]
  - STITCH ABSCESS [None]
  - SUICIDAL IDEATION [None]
  - SWELLING FACE [None]
  - TINEL'S SIGN [None]
  - TRIGGER FINGER [None]
  - UNEQUAL LIMB LENGTH [None]
  - URTICARIA [None]
  - WRIST FRACTURE [None]
